FAERS Safety Report 4366486-6 (Version None)
Quarter: 2004Q2

REPORT INFORMATION
  Report Type: 
  Country: None (occurrence: None)
  Receive Date: 20040527
  Receipt Date: 20040420
  Transmission Date: 20050107
  Serious: No
  Sender: FDA-Public Use
  Company Number: US-BRISTOL-MYERS SQUIBB COMPANY-12565891

PATIENT
  Age: 36 Year
  Sex: Female
  Weight: 58 kg

DRUGS (7)
  1. ERBITUX [Suspect]
     Indication: COLON CANCER
     Route: 042
     Dates: start: 20040413, end: 20040413
  2. CAMPTOSAR [Concomitant]
     Indication: COLON CANCER
     Dates: start: 20040413, end: 20040413
  3. BENADRYL [Concomitant]
     Indication: PREMEDICATION
     Route: 042
     Dates: start: 20040413, end: 20040413
  4. ZANTAC [Concomitant]
     Indication: PREMEDICATION
     Route: 042
     Dates: start: 20040413, end: 20040413
  5. ZOFRAN [Concomitant]
     Indication: PREMEDICATION
     Route: 042
     Dates: end: 20040413
  6. DECADRON [Concomitant]
     Indication: PREMEDICATION
     Route: 042
     Dates: start: 20040413, end: 20040413
  7. COUMADIN [Concomitant]

REACTIONS (1)
  - RASH GENERALISED [None]
